FAERS Safety Report 9859884 (Version 1)
Quarter: 2014Q1

REPORT INFORMATION
  Report Type: Spontaneous
  Country: US (occurrence: US)
  Receive Date: 20140131
  Receipt Date: 20140131
  Transmission Date: 20141002
  Serious: No
  Sender: FDA-Public Use
  Company Number: US-HALOZYME THERAPEUTICS, INC.-2013-US-HYA-00003

PATIENT
  Age: 30 Year
  Sex: Female

DRUGS (1)
  1. HYLENEX RECOMBINANT [Suspect]
     Indication: POST PROCEDURAL COMPLICATION

REACTIONS (5)
  - Skin wrinkling [Unknown]
  - Excessive skin [Unknown]
  - Skin discolouration [Unknown]
  - Dry eye [Unknown]
  - Asthenopia [Unknown]
